FAERS Safety Report 20473062 (Version 1)
Quarter: 2022Q1

REPORT INFORMATION
  Report Type: Report from Study
  Country: CA (occurrence: CA)
  Receive Date: 20220215
  Receipt Date: 20220215
  Transmission Date: 20220423
  Serious: Yes (Other)
  Sender: FDA-Public Use
  Company Number: CA-BRISTOL-MYERS SQUIBB COMPANY-BMS-2022-019948

PATIENT
  Age: 75 Year
  Sex: Male

DRUGS (1)
  1. NIVOLUMAB [Suspect]
     Active Substance: NIVOLUMAB
     Indication: Hepatocellular carcinoma
     Dosage: 240 MILLIGRAM, Q2WK
     Route: 042
     Dates: start: 20211231

REACTIONS (6)
  - Cerebrovascular accident [Unknown]
  - Pruritus [Unknown]
  - Rash [Unknown]
  - Pain [Unknown]
  - Insomnia [Unknown]
  - Stenosis [Unknown]
